FAERS Safety Report 21963439 (Version 1)
Quarter: 2023Q1

REPORT INFORMATION
  Report Type: Spontaneous
  Country: US (occurrence: US)
  Receive Date: 20230207
  Receipt Date: 20230207
  Transmission Date: 20230418
  Serious: No
  Sender: FDA-Public Use
  Company Number: US-Prasco Laboratories-PRAS20230033

PATIENT
  Sex: Female

DRUGS (1)
  1. ESTRADIOL [Suspect]
     Active Substance: ESTRADIOL
     Indication: Product used for unknown indication
     Dosage: USED WHOLE APPLICATOR AMOUNT - MORE THAN 4 G
     Route: 067

REACTIONS (5)
  - Hyperaesthesia [Unknown]
  - Nipple pain [Unknown]
  - Abdominal pain [Unknown]
  - Abdominal discomfort [Unknown]
  - Incorrect dose administered [Unknown]
